FAERS Safety Report 5219971-9 (Version None)
Quarter: 2007Q1

REPORT INFORMATION
  Report Type: 
  Country: None (occurrence: None)
  Receive Date: 20061201
  Receipt Date: 20060717
  Transmission Date: 20070707
  Serious: No
  Sender: FDA-Public Use
  Company Number: 2006PV017683

PATIENT
  Age: 52 Year
  Sex: Female
  Weight: 107.9561 kg

DRUGS (9)
  1. BYETTA [Suspect]
     Indication: DIABETES MELLITUS NON-INSULIN-DEPENDENT
     Dosage: SEE IMAGE
     Route: 058
     Dates: start: 20060201, end: 20060301
  2. BYETTA [Suspect]
     Indication: DIABETES MELLITUS NON-INSULIN-DEPENDENT
     Dosage: SEE IMAGE
     Route: 058
     Dates: start: 20060301
  3. GLUCOPHAGE [Concomitant]
  4. GLUCOTROL [Concomitant]
  5. CALCIUM [Concomitant]
  6. CRANBERRY [Concomitant]
  7. GARLIQUE [Concomitant]
  8. MEGAGREEN [Concomitant]
  9. LOTENSIN [Concomitant]

REACTIONS (7)
  - CHILLS [None]
  - HEADACHE [None]
  - MALAISE [None]
  - PYREXIA [None]
  - THERMAL BURN [None]
  - VOMITING [None]
  - WEIGHT DECREASED [None]
